FAERS Safety Report 7780718-3 (Version None)
Quarter: 2011Q3

REPORT INFORMATION
  Report Type: 
  Country: None (occurrence: None)
  Receive Date: 20110927
  Receipt Date: 20110512
  Transmission Date: 20111222
  Serious: No
  Sender: FDA-Public Use
  Company Number: US-BRISTOL-MYERS SQUIBB COMPANY-15717614

PATIENT
  Age: 45 Year
  Sex: Female

DRUGS (4)
  1. AVAPRO [Suspect]
     Indication: HYPERTENSION
     Dosage: 30 DAYS AGO. TOOK ON 4MAY11
     Route: 048
     Dates: start: 20110408, end: 20110429
  2. ASPIRIN [Concomitant]
  3. PROTONIX [Concomitant]
  4. FOLIC ACID [Concomitant]

REACTIONS (1)
  - FLUID RETENTION [None]
